FAERS Safety Report 20752803 (Version 1)
Quarter: 2022Q2

REPORT INFORMATION
  Report Type: Spontaneous
  Country: US (occurrence: None)
  Receive Date: 20220426
  Receipt Date: 20220426
  Transmission Date: 20220721
  Serious: No
  Sender: FDA-Public Use
  Company Number: US-ROCHE-2866335

PATIENT
  Sex: Female

DRUGS (1)
  1. ESBRIET [Suspect]
     Active Substance: PIRFENIDONE
     Indication: Idiopathic pulmonary fibrosis
     Dosage: TAKE 1 TABLET 3 TIMES DAILY FOR 1 WEEK, THEN 2 TABLETS 3 TIMES DAILY FOR 1 WEEK, THEN 3 TABLETS 3 TI
     Route: 065
     Dates: start: 202106

REACTIONS (2)
  - Headache [Not Recovered/Not Resolved]
  - Malaise [Recovered/Resolved]
